FAERS Safety Report 9912920 (Version 2)
Quarter: 2014Q1

REPORT INFORMATION
  Report Type: Spontaneous
  Country: JP (occurrence: JP)
  Receive Date: 20140220
  Receipt Date: 20140227
  Transmission Date: 20141002
  Serious: Yes (Death)
  Sender: FDA-Public Use
  Company Number: JP-SA-2014SA019078

PATIENT
  Age: 15 Year
  Sex: Female

DRUGS (1)
  1. CEREZYME [Suspect]
     Indication: GAUCHER^S DISEASE
     Dosage: DOSE : 1 VIAL PER TIME
     Route: 042
     Dates: start: 19990118, end: 20140204

REACTIONS (2)
  - Cardio-respiratory arrest [Fatal]
  - Disease progression [Fatal]
